FAERS Safety Report 21568412 (Version 1)
Quarter: 2022Q4

REPORT INFORMATION
  Report Type: Spontaneous
  Country: US (occurrence: None)
  Receive Date: 20221107
  Receipt Date: 20221107
  Transmission Date: 20230113
  Serious: Yes (unspecified)
  Sender: FDA-Public Use
  Company Number: None

PATIENT
  Age: 27 Year
  Sex: Male
  Weight: 77 kg

DRUGS (1)
  1. KETOROLAC TROMETHAMINE [Suspect]
     Active Substance: KETOROLAC TROMETHAMINE
     Indication: Pain
     Dosage: FREQUENCY : ONCE;?
     Route: 030
     Dates: start: 20220804, end: 20220804

REACTIONS (5)
  - Syncope [None]
  - Bradycardia [None]
  - Seizure [None]
  - Pallor [None]
  - Hyperhidrosis [None]

NARRATIVE: CASE EVENT DATE: 20220804
